FAERS Safety Report 18841539 (Version 15)
Quarter: 2025Q2

REPORT INFORMATION
  Report Type: Report from Study
  Country: US (occurrence: US)
  Receive Date: 20210203
  Receipt Date: 20250418
  Transmission Date: 20250717
  Serious: Yes (Hospitalization, Other)
  Sender: TAKEDA
  Company Number: US-TAKEDA-US202016319

PATIENT
  Age: 64 Year
  Sex: Male
  Weight: 75 kg

DRUGS (18)
  1. HUMAN IMMUNOGLOBULIN G\HYALURONIDASE RECOMBINANT HUMAN [Suspect]
     Active Substance: HUMAN IMMUNOGLOBULIN G\HYALURONIDASE (HUMAN RECOMBINANT)
     Indication: Immunodeficiency common variable
     Dosage: UNK UNK, MONTHLY
     Dates: start: 201512
  2. HUMAN IMMUNOGLOBULIN G\HYALURONIDASE RECOMBINANT HUMAN [Suspect]
     Active Substance: HUMAN IMMUNOGLOBULIN G\HYALURONIDASE (HUMAN RECOMBINANT)
     Indication: Primary immunodeficiency syndrome
     Dosage: 60 MILLIGRAM, Q4WEEKS
     Dates: start: 20180130
  3. HUMAN IMMUNOGLOBULIN G\HYALURONIDASE RECOMBINANT HUMAN [Suspect]
     Active Substance: HUMAN IMMUNOGLOBULIN G\HYALURONIDASE (HUMAN RECOMBINANT)
     Dosage: 60 MILLIGRAM, Q4WEEKS
     Dates: start: 20180221
  4. HUMAN IMMUNOGLOBULIN G\HYALURONIDASE RECOMBINANT HUMAN [Suspect]
     Active Substance: HUMAN IMMUNOGLOBULIN G\HYALURONIDASE (HUMAN RECOMBINANT)
     Dosage: 60 GRAM, Q4WEEKS
  5. COVID-19 VACCINE NOS [Suspect]
     Active Substance: COVID-19 VACCINE
     Indication: COVID-19 immunisation
  6. PNEUMOCOCCAL VACCINE POLYVALENT NOS [Suspect]
     Active Substance: PNEUMOCOCCAL VACCINE, POLYVALENT
     Indication: Product used for unknown indication
  7. SODIUM CHLORIDE [Concomitant]
     Active Substance: SODIUM CHLORIDE
  8. ACETAMINOPHEN [Concomitant]
     Active Substance: ACETAMINOPHEN
  9. LIDOCAINE\PRILOCAINE [Concomitant]
     Active Substance: LIDOCAINE\PRILOCAINE
  10. DIPHENHYDRAMINE HYDROCHLORIDE [Concomitant]
     Active Substance: DIPHENHYDRAMINE HYDROCHLORIDE
  11. DIPHENHYDRAMINE [Concomitant]
     Active Substance: DIPHENHYDRAMINE
  12. EPINEPHRINE [Concomitant]
     Active Substance: EPINEPHRINE
  13. Lmx [Concomitant]
  14. LIDOCAINE [Concomitant]
     Active Substance: LIDOCAINE
  15. ZOLOFT [Concomitant]
     Active Substance: SERTRALINE HYDROCHLORIDE
  16. LIPITOR [Concomitant]
     Active Substance: ATORVASTATIN CALCIUM
  17. SINGULAIR [Concomitant]
     Active Substance: MONTELUKAST SODIUM
  18. WELLBUTRIN [Concomitant]
     Active Substance: BUPROPION HYDROCHLORIDE

REACTIONS (19)
  - Blood pressure decreased [Unknown]
  - Dysphonia [Unknown]
  - Septic shock [Unknown]
  - Pneumonia [Unknown]
  - Upper-airway cough syndrome [Unknown]
  - Sinusitis [Recovered/Resolved]
  - Device defective [Unknown]
  - Pleurisy [Unknown]
  - Incorrect dose administered [Unknown]
  - Hypersomnia [Unknown]
  - Nasopharyngitis [Unknown]
  - Infusion site pruritus [Recovered/Resolved]
  - Tremor [Recovered/Resolved]
  - Pain in extremity [Unknown]
  - Lethargy [Unknown]
  - Headache [Unknown]
  - Infusion site discharge [Unknown]
  - Bronchitis [Not Recovered/Not Resolved]
  - Chills [Recovered/Resolved]

NARRATIVE: CASE EVENT DATE: 20210101
